FAERS Safety Report 20238962 (Version 1)
Quarter: 2021Q4

REPORT INFORMATION
  Report Type: Report from Study
  Country: MX (occurrence: MX)
  Receive Date: 20211228
  Receipt Date: 20211228
  Transmission Date: 20220303
  Serious: Yes (Other)
  Sender: FDA-Public Use
  Company Number: MX-NOVARTISPH-PHHY2019MX039459

PATIENT
  Age: 65 Year
  Sex: Female
  Weight: 50 kg

DRUGS (3)
  1. METFORMIN HYDROCHLORIDE\VILDAGLIPTIN [Interacting]
     Active Substance: METFORMIN HYDROCHLORIDE\VILDAGLIPTIN
     Indication: Diabetes mellitus
     Dosage: 1 DF(METFORMIN 500 MG VILDAGLIPTIN 50 MG), QD
     Route: 065
     Dates: start: 20091015, end: 2018
  2. METFORMIN HYDROCHLORIDE\VILDAGLIPTIN [Interacting]
     Active Substance: METFORMIN HYDROCHLORIDE\VILDAGLIPTIN
     Dosage: 1 DOSAGE FORM (50/850 MG)
     Route: 048
     Dates: start: 2015
  3. HYDROCHLOROTHIAZIDE\VALSARTAN [Interacting]
     Active Substance: HYDROCHLOROTHIAZIDE\VALSARTAN
     Indication: Product used for unknown indication
     Dosage: 2 DF,(HYDROCHLOROTHIAZIDE 12.5 MG VALSARTAN 160 MG) BID
     Route: 065
     Dates: start: 20091022, end: 2018

REACTIONS (6)
  - Pneumonia [Recovered/Resolved]
  - Fall [Unknown]
  - General physical condition abnormal [Unknown]
  - Feeling abnormal [Not Recovered/Not Resolved]
  - Blood glucose increased [Unknown]
  - Inappropriate schedule of product administration [Unknown]

NARRATIVE: CASE EVENT DATE: 20211204
